FAERS Safety Report 6557232-6 (Version None)
Quarter: 2010Q1

REPORT INFORMATION
  Report Type: 
  Country: None (occurrence: None)
  Receive Date: 20100129
  Receipt Date: 20100120
  Transmission Date: 20100710
  Serious: Yes (Other)
  Sender: FDA-Public Use
  Company Number: US-RB-001581-10

PATIENT
  Age: 69 Year
  Sex: Male

DRUGS (2)
  1. MUCINEX DM [Suspect]
     Indication: MIDDLE EAR EFFUSION
     Dosage: TOOK 1 TABLET EVERY MORNING FOR 2 WEEKS
     Route: 048
     Dates: start: 20100101
  2. MUCINEX DM [Suspect]
     Indication: RESPIRATORY TRACT CONGESTION
     Dosage: TOOK 1 TABLET EVERY MORNING FOR 2 WEEKS
     Route: 048
     Dates: start: 20100101

REACTIONS (2)
  - BLOOD PRESSURE INCREASED [None]
  - DIZZINESS [None]
